FAERS Safety Report 14354169 (Version 2)
Quarter: 2018Q1

REPORT INFORMATION
  Report Type: Spontaneous
  Country: US (occurrence: US)
  Receive Date: 20180105
  Receipt Date: 20180112
  Transmission Date: 20180509
  Serious: Yes (Other)
  Sender: FDA-Public Use
  Company Number: US-BAYER-2018-000863

PATIENT
  Age: 6 Year
  Sex: Female
  Weight: 26.3 kg

DRUGS (4)
  1. MIRALAX [Suspect]
     Active Substance: POLYETHYLENE GLYCOL 3350
     Dosage: 1 TEASPOON A DAY
     Route: 048
     Dates: start: 2012, end: 20171209
  2. MIRALAX [Suspect]
     Active Substance: POLYETHYLENE GLYCOL 3350
     Dosage: 1 TEASPOON
     Route: 048
     Dates: start: 2011
  3. FLONASE [Concomitant]
     Active Substance: FLUTICASONE PROPIONATE
  4. MAGNESIUM [Concomitant]
     Active Substance: MAGNESIUM

REACTIONS (22)
  - Amnesia [Recovering/Resolving]
  - Mood swings [Recovering/Resolving]
  - Incorrect drug administration duration [Unknown]
  - Product use issue [Unknown]
  - Irritability [Recovering/Resolving]
  - Dizziness [Not Recovered/Not Resolved]
  - Initial insomnia [Recovering/Resolving]
  - Abdominal pain lower [None]
  - Oropharyngeal pain [None]
  - Nervousness [Not Recovered/Not Resolved]
  - Cough [Not Recovered/Not Resolved]
  - Nightmare [Recovering/Resolving]
  - Insomnia [Recovering/Resolving]
  - Misophonia [Not Recovered/Not Resolved]
  - Aggression [Recovering/Resolving]
  - Anger [None]
  - Gastritis [None]
  - Autophobia [Not Recovered/Not Resolved]
  - Heat stroke [Not Recovered/Not Resolved]
  - Anxiety [Not Recovered/Not Resolved]
  - Fear [Not Recovered/Not Resolved]
  - Confusional state [Not Recovered/Not Resolved]

NARRATIVE: CASE EVENT DATE: 2011
